FAERS Safety Report 15639469 (Version 1)
Quarter: 2018Q4

REPORT INFORMATION
  Report Type: Spontaneous
  Country: US (occurrence: US)
  Receive Date: 20181120
  Receipt Date: 20181120
  Transmission Date: 20190205
  Serious: Yes (Hospitalization)
  Sender: FDA-Public Use
  Company Number: US-HORIZON-RAV-0122-2018

PATIENT
  Age: 68 Year
  Sex: Female

DRUGS (3)
  1. ANTICOAGULANT LOVENOX [Concomitant]
  2. RAVICTI [Suspect]
     Active Substance: GLYCEROL PHENYLBUTYRATE
     Indication: UREA CYCLE DISORDER
     Dosage: 5.5 ML (1.1 G/ML) VIA G-TUBE TID (DOSE CHANGE)
     Route: 048
     Dates: start: 20160323
  3. PROTONIX [Concomitant]
     Active Substance: PANTOPRAZOLE SODIUM

REACTIONS (5)
  - Hypoglycaemia [Recovered/Resolved]
  - Cardiac failure congestive [Unknown]
  - Decreased appetite [Unknown]
  - Product administration error [Unknown]
  - Ammonia increased [Recovering/Resolving]

NARRATIVE: CASE EVENT DATE: 201806
